FAERS Safety Report 9515670 (Version 2)
Quarter: 2014Q1

REPORT INFORMATION
  Report Type: Spontaneous
  Country: US (occurrence: US)
  Receive Date: 20130911
  Receipt Date: 20140114
  Transmission Date: 20141002
  Serious: Yes (Death, Life-Threatening, Hospitalization)
  Sender: FDA-Public Use
  Company Number: US-BAYER-2013-109360

PATIENT
  Age: 34 Year
  Sex: Female
  Weight: 53.52 kg

DRUGS (22)
  1. YAZ [Suspect]
  2. YASMIN [Suspect]
  3. OCELLA [Suspect]
     Dosage: UNK
  4. ZARAH [Suspect]
  5. ZOLPIDEM [Concomitant]
     Indication: INSOMNIA
     Dosage: 10 MG, UNK
  6. PAROXETINE [Concomitant]
     Dosage: 20 MG, UNK
     Route: 048
  7. IMITREX [Concomitant]
     Indication: HEADACHE
     Dosage: 100 MG, UNK
  8. ROZEREM [Concomitant]
     Dosage: 8 MG, UNK
  9. LUNESTA [Concomitant]
     Indication: INSOMNIA
     Dosage: 2 MG, UNK
  10. TRIAMCINOLONE [Concomitant]
     Dosage: 0.1 %, UNK
  11. ZALEPLON [Concomitant]
     Indication: INSOMNIA
     Dosage: 10 MG, UNK
     Route: 048
  12. ALPRAZOLAM [Concomitant]
     Indication: ANXIETY
     Dosage: 0.25 MG, UNK
  13. ZYRTEC [Concomitant]
     Indication: MULTIPLE ALLERGIES
     Dosage: 10 MG, UNK
  14. ALEVE [Concomitant]
     Dosage: 220 MG, UNK
  15. ATIVAN [Concomitant]
  16. EPINEPHRINE [Concomitant]
  17. FOSPHENYTOIN [Concomitant]
  18. ATROPINE [Concomitant]
  19. ETOMIDATE [Concomitant]
  20. ROCURONIUM [Concomitant]
  21. CALCIUM CARBONATE [Concomitant]
  22. SODIUM BICARBONATE [Concomitant]

REACTIONS (7)
  - Pulmonary embolism [Fatal]
  - Pain [Fatal]
  - Injury [Fatal]
  - Emotional distress [None]
  - Anhedonia [Fatal]
  - Depression [None]
  - Psychological trauma [None]
